FAERS Safety Report 15501337 (Version 4)
Quarter: 2019Q1

REPORT INFORMATION
  Report Type: Spontaneous
  Country: EG (occurrence: EG)
  Receive Date: 20181015
  Receipt Date: 20190121
  Transmission Date: 20190417
  Serious: Yes (Death, Life-Threatening, Other)
  Sender: FDA-Public Use
  Company Number: PHHY2018EG126765

PATIENT
  Age: 34 Year
  Sex: Male
  Weight: 160 kg

DRUGS (5)
  1. TEGRETOL [Concomitant]
     Active Substance: CARBAMAZEPINE
     Indication: HYPERTENSION
     Dosage: 200 OT, UNK
     Route: 065
     Dates: start: 20180923
  2. CIDOPHAGE [Concomitant]
     Indication: PRODUCT USED FOR UNKNOWN INDICATION
     Dosage: 1000 OT, UNK
     Route: 065
     Dates: start: 20180923
  3. HEMOCLAR [Concomitant]
     Indication: PRODUCT USED FOR UNKNOWN INDICATION
     Dosage: UNK
     Route: 065
     Dates: start: 20180923
  4. CEFTRIAXONE SANDOZ [Suspect]
     Active Substance: CEFTRIAXONE
     Indication: ERYTHEMA
     Dosage: 1 G, QD
     Route: 042
     Dates: start: 20180923
  5. LUCIDRIL [Concomitant]
     Indication: PRODUCT USED FOR UNKNOWN INDICATION
     Dosage: 500 MG, UNK
     Route: 065
     Dates: start: 20180923

REACTIONS (5)
  - Cardiac arrest [Fatal]
  - Skin discolouration [Unknown]
  - Dyspnoea [Unknown]
  - Cyanosis [Unknown]
  - Asphyxia [Unknown]

NARRATIVE: CASE EVENT DATE: 20180923
